FAERS Safety Report 7159326-3 (Version None)
Quarter: 2010Q4

REPORT INFORMATION
  Report Type: 
  Country: None (occurrence: None)
  Receive Date: 20101214
  Receipt Date: 20100818
  Transmission Date: 20110411
  Serious: No
  Sender: FDA-Public Use
  Company Number: US-ASTRAZENECA-2010SE38895

PATIENT
  Age: 82 Year
  Sex: Male

DRUGS (7)
  1. CRESTOR [Suspect]
     Indication: HYPERCHOLESTEROLAEMIA
     Route: 048
     Dates: start: 20100701
  2. COUMADIN [Concomitant]
  3. ASPIRIN [Concomitant]
  4. METOPROLOL [Concomitant]
  5. ISOSORBIDE DINITRATE [Concomitant]
  6. DIGOXIN [Concomitant]
  7. M.V.I. [Concomitant]

REACTIONS (4)
  - CARDIAC PACEMAKER REPLACEMENT [None]
  - HEADACHE [None]
  - LOW DENSITY LIPOPROTEIN DECREASED [None]
  - MYALGIA [None]
